FAERS Safety Report 20724357 (Version 1)
Quarter: 2022Q2

REPORT INFORMATION
  Report Type: Spontaneous
  Country: NP (occurrence: NP)
  Receive Date: 20220419
  Receipt Date: 20220419
  Transmission Date: 20220721
  Serious: Yes (Death)
  Sender: FDA-Public Use
  Company Number: NP-PFIZER INC-202200549793

PATIENT
  Age: 67 Year
  Sex: Male

DRUGS (1)
  1. XALKORI [Suspect]
     Active Substance: CRIZOTINIB
     Indication: Non-small cell lung cancer
     Dosage: 500 MG (2 X 250MG)

REACTIONS (2)
  - Neoplasm progression [Fatal]
  - Cardio-respiratory arrest [Fatal]
